FAERS Safety Report 21543338 (Version 1)
Quarter: 2022Q4

REPORT INFORMATION
  Report Type: Report from Study
  Country: CA (occurrence: CA)
  Receive Date: 20221102
  Receipt Date: 20221102
  Transmission Date: 20230113
  Serious: Yes (Other)
  Sender: FDA-Public Use
  Company Number: CA-ABBVIE-22K-028-4304969-00

PATIENT
  Age: 58 Year
  Sex: Male

DRUGS (21)
  1. SKYRIZI [Suspect]
     Active Substance: RISANKIZUMAB-RZAA
     Indication: Psoriasis
     Route: 058
     Dates: start: 20190718, end: 20190814
  2. SKYRIZI [Suspect]
     Active Substance: RISANKIZUMAB-RZAA
     Route: 058
     Dates: start: 20190814
  3. CELEBREX [Concomitant]
     Active Substance: CELECOXIB
     Indication: Psoriatic arthropathy
     Route: 048
     Dates: start: 20210913
  4. TYLENOL [Concomitant]
     Active Substance: ACETAMINOPHEN
     Indication: Psoriatic arthropathy
     Dosage: FREQUENCY TEXT: AS NEEDED
     Route: 048
     Dates: start: 202201
  5. METFORMIN [Concomitant]
     Active Substance: METFORMIN HYDROCHLORIDE
     Indication: Type 2 diabetes mellitus
     Route: 048
     Dates: start: 2004
  6. METFORMIN [Concomitant]
     Active Substance: METFORMIN HYDROCHLORIDE
     Indication: Type 2 diabetes mellitus
     Route: 048
     Dates: start: 201912
  7. GLICLAZIDE [Concomitant]
     Active Substance: GLICLAZIDE
     Indication: Type 2 diabetes mellitus
     Route: 048
     Dates: start: 2000
  8. INVOKANA [Concomitant]
     Active Substance: CANAGLIFLOZIN
     Indication: Hypertension
     Route: 048
     Dates: start: 2000
  9. ARAVA [Concomitant]
     Active Substance: LEFLUNOMIDE
     Indication: Psoriatic arthropathy
     Route: 048
     Dates: start: 202201
  10. CIPRALEX [Concomitant]
     Active Substance: ESCITALOPRAM OXALATE
     Indication: Depression
     Route: 048
     Dates: start: 2016
  11. VITAMIN B12 [Concomitant]
     Active Substance: CYANOCOBALAMIN
     Indication: Vitamin supplementation
     Route: 048
     Dates: start: 2017
  12. AMOXIL [Concomitant]
     Active Substance: AMOXICILLIN
     Indication: Tooth infection
     Route: 048
     Dates: start: 20191025, end: 20191101
  13. METRONIDAZOLE [Concomitant]
     Active Substance: METRONIDAZOLE
     Indication: Localised infection
     Route: 048
     Dates: start: 20191025, end: 20191101
  14. Metformin (Janumet XR) [Concomitant]
     Indication: Type 2 diabetes mellitus
     Route: 048
     Dates: start: 2004
  15. OZEMPIC [Concomitant]
     Active Substance: SEMAGLUTIDE
     Indication: Type 2 diabetes mellitus
     Route: 058
     Dates: start: 201912, end: 20200601
  16. BILASTINE [Concomitant]
     Active Substance: BILASTINE
     Indication: Adverse drug reaction
     Route: 048
     Dates: start: 20200422
  17. MOMETASONE FUROATE [Concomitant]
     Active Substance: MOMETASONE FUROATE
     Indication: Adverse drug reaction
     Dosage: 1 APPLICATION
     Route: 061
     Dates: start: 20200422
  18. SORIATANE [Concomitant]
     Active Substance: ACITRETIN
     Indication: Psoriasis
     Route: 048
     Dates: start: 20201007
  19. Quinapril (Accuretic) [Concomitant]
     Indication: Hypertension
     Route: 048
     Dates: start: 2000
  20. PFIZER-BIONTECH COVID-19 VACCINE [Concomitant]
     Active Substance: TOZINAMERAN
     Indication: COVID-19 prophylaxis
     Dosage: ONE IN ONCE
     Route: 030
     Dates: start: 20211121, end: 20211121
  21. Hydrochlorothiazide (Accuretic) [Concomitant]
     Indication: Hypertension
     Route: 048
     Dates: start: 2000

REACTIONS (1)
  - Carpal tunnel syndrome [Recovered/Resolved]

NARRATIVE: CASE EVENT DATE: 20210825
